FAERS Safety Report 25585292 (Version 1)
Quarter: 2025Q3

REPORT INFORMATION
  Report Type: Spontaneous
  Country: US (occurrence: US)
  Receive Date: 20250721
  Receipt Date: 20250721
  Transmission Date: 20251021
  Serious: Yes (Hospitalization, Other)
  Sender: SUVEN PHARMACEUTICALS LIMITED
  Company Number: US-Suven-000031

PATIENT
  Sex: Female

DRUGS (4)
  1. CHLOROQUINE PHOSPHATE [Suspect]
     Active Substance: CHLOROQUINE PHOSPHATE
     Indication: Meningioma
     Dates: start: 2021, end: 202309
  2. ABEMACICLIB [Suspect]
     Active Substance: ABEMACICLIB
     Indication: Meningioma
     Dates: start: 202107
  3. DISULFIRAM [Suspect]
     Active Substance: DISULFIRAM
     Indication: Meningioma
     Dates: start: 202207, end: 202209
  4. COPPER [Suspect]
     Active Substance: COPPER
     Indication: Meningioma
     Dates: start: 202207, end: 202209

REACTIONS (2)
  - Pneumonia aspiration [Unknown]
  - Urinary tract infection [Unknown]

NARRATIVE: CASE EVENT DATE: 20220101
